FAERS Safety Report 7545474-2 (Version None)
Quarter: 2011Q2

REPORT INFORMATION
  Report Type: 
  Country: None (occurrence: None)
  Receive Date: 20110614
  Receipt Date: 20110531
  Transmission Date: 20111010
  Serious: Yes (Hospitalization)
  Sender: FDA-Public Use
  Company Number: CA-JNJFOC-20100900736

PATIENT
  Sex: Female
  Weight: 80 kg

DRUGS (15)
  1. GLYBURIDE [Concomitant]
     Route: 048
  2. SIMVASTATIN [Concomitant]
     Route: 048
  3. EFFEXOR [Concomitant]
     Route: 048
  4. CYCLOBENZAPRINE [Concomitant]
     Route: 048
  5. DIPROSALIC [Concomitant]
     Route: 061
  6. FERROUS SULFATE TAB [Concomitant]
     Route: 048
  7. REMICADE [Suspect]
     Route: 042
     Dates: start: 20100819
  8. METFORMIN HCL [Concomitant]
     Route: 048
  9. PANTOPRAZOLE [Concomitant]
     Route: 048
  10. ACTONEL [Concomitant]
     Route: 048
  11. DIOVAN HCT [Concomitant]
     Route: 048
  12. ADALAT [Concomitant]
     Route: 048
  13. REMICADE [Suspect]
     Indication: PSORIASIS
     Route: 042
     Dates: start: 20100805
  14. NOVO-GESIC [Concomitant]
     Route: 048
  15. BIOCAL D FORTE [Concomitant]
     Route: 048

REACTIONS (5)
  - BLOOD PRESSURE DECREASED [None]
  - CHOLECYSTITIS [None]
  - MALAISE [None]
  - BLOOD GLUCOSE INCREASED [None]
  - DIARRHOEA [None]
